FAERS Safety Report 9289537 (Version 2)
Quarter: 2013Q4

REPORT INFORMATION
  Report Type: Spontaneous
  Country: US (occurrence: US)
  Receive Date: 20130515
  Receipt Date: 20131014
  Transmission Date: 20140711
  Serious: Yes (Hospitalization)
  Sender: FDA-Public Use
  Company Number: US-B.I. PHARMACEUTICALS,INC./RIDGEFIELD-2013-BI-13287BP

PATIENT
  Sex: Female
  Weight: 40.37 kg

DRUGS (4)
  1. PRADAXA [Suspect]
     Indication: ATRIAL FIBRILLATION
     Dosage: 300 MG
     Dates: start: 20110429, end: 20110523
  2. LISINOPRIL [Concomitant]
     Dosage: 40 MG
  3. MULTAQ [Concomitant]
     Dosage: 800 MG
  4. PRAVASTATIN [Concomitant]
     Dosage: 40 MG

REACTIONS (5)
  - Upper gastrointestinal haemorrhage [Unknown]
  - Haemorrhagic anaemia [Unknown]
  - Coagulopathy [Unknown]
  - Gastric ulcer [Unknown]
  - Oesophageal polyp [Recovered/Resolved]
